FAERS Safety Report 20336419 (Version 3)
Quarter: 2022Q1

REPORT INFORMATION
  Report Type: Report from Study
  Country: JP (occurrence: JP)
  Receive Date: 20220114
  Receipt Date: 20220202
  Transmission Date: 20220423
  Serious: Yes (Hospitalization)
  Sender: FDA-Public Use
  Company Number: JP-PFIZER INC-202200021912

PATIENT
  Age: 81 Year
  Sex: Male
  Weight: 42.4 kg

DRUGS (16)
  1. TALAZOPARIB [Suspect]
     Active Substance: TALAZOPARIB
     Indication: Prostate cancer metastatic
     Dosage: ONCE DAILY
     Route: 048
     Dates: start: 20210805, end: 20220106
  2. ENZALUTAMIDE [Suspect]
     Active Substance: ENZALUTAMIDE
     Indication: Prostate cancer metastatic
     Dosage: 160 MG, ONCE DAILY
     Route: 048
     Dates: start: 20210805, end: 20220106
  3. METOCLOPRAMIDE [Concomitant]
     Active Substance: METOCLOPRAMIDE
     Indication: Vomiting
     Dosage: 5 MG, 3X/DAY
     Route: 048
     Dates: start: 20210831
  4. METOCLOPRAMIDE [Concomitant]
     Active Substance: METOCLOPRAMIDE
     Indication: Nausea
  5. CALCIUM CARBONATE\CHOLECALCIFEROL\MAGNESIUM CARBONATE [Concomitant]
     Active Substance: CALCIUM CARBONATE\CHOLECALCIFEROL\MAGNESIUM CARBONATE
     Indication: Prophylaxis
     Dosage: 2 TABLET, ONCE
     Route: 048
     Dates: start: 20210917
  6. TIOTROPIUM BROMIDE [Concomitant]
     Active Substance: TIOTROPIUM BROMIDE
     Indication: Asthma
     Dosage: 2 PUFF, ONCE TIOTROPIUM BROMIDE HYDRATE
     Route: 048
     Dates: start: 2001
  7. ACETAMINOPHEN [Concomitant]
     Active Substance: ACETAMINOPHEN
     Indication: Dysuria
     Dosage: 400 MG, AS NEEDED
     Route: 048
     Dates: start: 20210615
  8. DEGARELIX ACETATE [Concomitant]
     Active Substance: DEGARELIX ACETATE
     Indication: Androgen therapy
     Dosage: 80 MG, EVERY 4 WEEKS
     Route: 058
     Dates: start: 20210715
  9. DENOSUMAB [Concomitant]
     Active Substance: DENOSUMAB
     Indication: Metastases to bone
     Dosage: 120 MG, EVERY 4 WEEKS (GENETICAL RECOMBINATION)
     Route: 058
     Dates: start: 20210916
  10. THEOPHYLLINE [Concomitant]
     Active Substance: THEOPHYLLINE
     Indication: Asthma
     Dosage: 100 MG, 2X/DAY
     Route: 048
     Dates: start: 2001
  11. FEXOFENADINE HYDROCHLORIDE [Concomitant]
     Active Substance: FEXOFENADINE HYDROCHLORIDE
     Indication: Asthma
     Dosage: 60 MG, 2X/DAY
     Route: 048
     Dates: start: 2001
  12. CARBOCYSTEINE [Concomitant]
     Active Substance: CARBOCYSTEINE
     Indication: Asthma
     Dosage: 500 MG, 2X/DAY
     Route: 048
     Dates: start: 2001
  13. DILTIAZEM HYDROCHLORIDE [Concomitant]
     Active Substance: DILTIAZEM HYDROCHLORIDE
     Indication: Angina pectoris
     Dosage: 100 MG, ONCE
     Route: 048
     Dates: start: 2001
  14. BUDESONIDE\FORMOTEROL FUMARATE [Concomitant]
     Active Substance: BUDESONIDE\FORMOTEROL FUMARATE
     Indication: Asthma
     Dosage: 1 PUFF, 2X/DAY
     Route: 048
     Dates: start: 2001
  15. MAGNESIUM OXIDE [Concomitant]
     Active Substance: MAGNESIUM OXIDE
     Indication: Constipation
     Dosage: 660 MG, 3X/DAY
     Route: 048
     Dates: start: 2001
  16. PROCATEROL HYDROCHLORIDE HYDRATE [Concomitant]
     Indication: Asthma
     Dosage: 2 PUFF, AS NEEDED
     Route: 048
     Dates: start: 2001

REACTIONS (1)
  - Intestinal obstruction [Recovered/Resolved]

NARRATIVE: CASE EVENT DATE: 20220106
